FAERS Safety Report 24135810 (Version 1)
Quarter: 2024Q3

REPORT INFORMATION
  Report Type: Spontaneous
  Country: AU (occurrence: AU)
  Receive Date: 20240725
  Receipt Date: 20240725
  Transmission Date: 20241016
  Serious: Yes (Death)
  Sender: MYLAN
  Company Number: AU-MYLANLABS-2024M1069235

PATIENT
  Age: 69 Year
  Sex: Female

DRUGS (1)
  1. CLOZARIL [Suspect]
     Active Substance: CLOZAPINE
     Indication: Schizophrenia
     Dosage: 100 MILLIGRAM
     Route: 048
     Dates: start: 19940526

REACTIONS (1)
  - Death [Fatal]

NARRATIVE: CASE EVENT DATE: 20240715
